FAERS Safety Report 18415548 (Version 2)
Quarter: 2020Q4

REPORT INFORMATION
  Report Type: Report from Study
  Country: US (occurrence: US)
  Receive Date: 20201022
  Receipt Date: 20201120
  Transmission Date: 20210114
  Serious: No
  Sender: FDA-Public Use
  Company Number: NVSC2020US283394

PATIENT
  Sex: Female

DRUGS (1)
  1. TABRECTA [Suspect]
     Active Substance: CAPMATINIB
     Indication: LUNG CARCINOMA CELL TYPE UNSPECIFIED STAGE 0
     Dosage: 400 MG, BID
     Route: 048
     Dates: start: 20201012

REACTIONS (4)
  - Nausea [Unknown]
  - Anxiety disorder [Unknown]
  - Product physical issue [Unknown]
  - Oedema peripheral [Unknown]
